FAERS Safety Report 16064264 (Version 6)
Quarter: 2020Q3

REPORT INFORMATION
  Report Type: Report from Study
  Country: US (occurrence: US)
  Receive Date: 20190312
  Receipt Date: 20200806
  Transmission Date: 20201102
  Serious: Yes (Death, Hospitalization)
  Sender: FDA-Public Use
  Company Number: US-ACTELION-A-NJ2019-187304

PATIENT
  Age: 45 Year
  Sex: Female
  Weight: 81.18 kg

DRUGS (4)
  1. OPSUMIT [Suspect]
     Active Substance: MACITENTAN
     Indication: PULMONARY ARTERIAL HYPERTENSION
     Dosage: 10 MG, QD
     Route: 048
  2. REMODULIN [Suspect]
     Active Substance: TREPROSTINIL
     Dosage: UNK
     Route: 042
  3. REMODULIN [Suspect]
     Active Substance: TREPROSTINIL
     Indication: PRODUCT USED FOR UNKNOWN INDICATION
     Dosage: UNK
     Route: 058
  4. SILDENAFIL CITRATE. [Concomitant]
     Active Substance: SILDENAFIL CITRATE

REACTIONS (12)
  - Cellulitis [Recovering/Resolving]
  - Abdominal pain upper [Unknown]
  - Cardiac failure [Unknown]
  - Fluid retention [Unknown]
  - Unevaluable event [Unknown]
  - Hospice care [Unknown]
  - Oedema [Unknown]
  - Malaise [Unknown]
  - Death [Fatal]
  - Right ventricular failure [Unknown]
  - Respiratory disorder [Unknown]
  - Sepsis [Unknown]

NARRATIVE: CASE EVENT DATE: 20200716
